FAERS Safety Report 9669307 (Version 3)
Quarter: 2014Q1

REPORT INFORMATION
  Report Type: Spontaneous
  Country: FR (occurrence: FR)
  Receive Date: 20131105
  Receipt Date: 20140211
  Transmission Date: 20141002
  Serious: Yes (Hospitalization, Other)
  Sender: FDA-Public Use
  Company Number: FR-ASTRAZENECA-2013SE79819

PATIENT
  Age: 30289 Day
  Sex: Female

DRUGS (13)
  1. INEXIUM [Suspect]
     Route: 048
     Dates: end: 20130917
  2. LUCENTIS [Suspect]
     Indication: AGE-RELATED MACULAR DEGENERATION
     Route: 021
     Dates: start: 20090706, end: 20090706
  3. LUCENTIS [Suspect]
     Indication: AGE-RELATED MACULAR DEGENERATION
     Route: 021
     Dates: start: 20090807, end: 20090807
  4. LUCENTIS [Suspect]
     Indication: AGE-RELATED MACULAR DEGENERATION
     Route: 021
     Dates: start: 20090908, end: 20090908
  5. LUCENTIS [Suspect]
     Indication: AGE-RELATED MACULAR DEGENERATION
     Route: 021
     Dates: start: 20091214, end: 20091214
  6. LUCENTIS [Suspect]
     Indication: AGE-RELATED MACULAR DEGENERATION
     Route: 021
     Dates: start: 20101206, end: 20101206
  7. LUCENTIS [Suspect]
     Indication: AGE-RELATED MACULAR DEGENERATION
     Route: 021
     Dates: start: 20130909, end: 20130909
  8. LOXEN [Suspect]
     Indication: HYPERTENSION
     Route: 048
     Dates: end: 20130917
  9. PREDNISOLONE [Suspect]
     Indication: TEMPORAL ARTERITIS
     Route: 048
     Dates: start: 201306, end: 20130917
  10. DOLIPRANE [Concomitant]
     Route: 048
  11. CACIT [Concomitant]
     Route: 048
  12. FORLAX [Concomitant]
     Route: 048
  13. AUGMENTIN [Concomitant]
     Dates: start: 20130909, end: 20130917

REACTIONS (6)
  - Haemolytic anaemia [Unknown]
  - Thrombotic microangiopathy [Recovered/Resolved with Sequelae]
  - Hypertension [Unknown]
  - Renal failure acute [Unknown]
  - Hypernatraemia [Unknown]
  - Fluid retention [Unknown]
